FAERS Safety Report 10593057 (Version 1)
Quarter: 2014Q4

REPORT INFORMATION
  Report Type: Spontaneous
  Country: US (occurrence: US)
  Receive Date: 20141119
  Receipt Date: 20141119
  Transmission Date: 20150529
  Serious: No
  Sender: FDA-Public Use
  Company Number: US-EISAI MEDICAL RESEARCH-EC-2014-001627

PATIENT
  Age: 28 Year
  Sex: Female
  Weight: 83.4 kg

DRUGS (4)
  1. STAVZOR [Concomitant]
     Active Substance: VALPROIC ACID
     Indication: COMPLEX PARTIAL SEIZURES
  2. BANZEL [Suspect]
     Active Substance: RUFINAMIDE
     Indication: COMPLEX PARTIAL SEIZURES
     Route: 048
     Dates: start: 20141111, end: 20141111
  3. SEASONALE [Concomitant]
     Active Substance: ETHINYL ESTRADIOL\LEVONORGESTREL
     Indication: CONTRACEPTION
  4. VALIUM [Concomitant]
     Active Substance: DIAZEPAM
     Indication: ANXIETY

REACTIONS (1)
  - Seizure [Recovered/Resolved]

NARRATIVE: CASE EVENT DATE: 20141111
